FAERS Safety Report 17846160 (Version 2)
Quarter: 2020Q4

REPORT INFORMATION
  Report Type: Report from Study
  Country: GB (occurrence: GB)
  Receive Date: 20200601
  Receipt Date: 20201016
  Transmission Date: 20210113
  Serious: Yes (Other)
  Sender: FDA-Public Use
  Company Number: NVSC2020GB070903

PATIENT
  Sex: Female

DRUGS (3)
  1. HYRIMOZ [Suspect]
     Active Substance: ADALIMUMAB-ADAZ
     Indication: ANKYLOSING SPONDYLITIS
     Dosage: UNK UNK, QW
     Route: 058
  2. HYRIMOZ [Suspect]
     Active Substance: ADALIMUMAB-ADAZ
     Dosage: 40 MG, QW, (40/0.8 MG/ML)
     Route: 058
     Dates: start: 20200309
  3. HYRIMOZ [Suspect]
     Active Substance: ADALIMUMAB-ADAZ
     Dosage: 40 MG/0.8 ML, EOW (BEFORE BEDTIME)
     Route: 065

REACTIONS (10)
  - Nausea [Unknown]
  - Back pain [Recovering/Resolving]
  - Injection site pain [Recovered/Resolved]
  - Dizziness [Unknown]
  - Arthralgia [Not Recovered/Not Resolved]
  - Product dose omission issue [Recovered/Resolved]
  - Illness [Unknown]
  - Dysgeusia [Unknown]
  - Fatigue [Unknown]
  - Ankylosing spondylitis [Recovered/Resolved]
